FAERS Safety Report 7015696-8 (Version None)
Quarter: 2010Q3

REPORT INFORMATION
  Report Type: 
  Country: None (occurrence: None)
  Receive Date: 20100927
  Receipt Date: 20100224
  Transmission Date: 20110219
  Serious: No
  Sender: FDA-Public Use
  Company Number: US-ASTRAZENECA-2010SE08132

PATIENT
  Age: 76 Year
  Sex: Female
  Weight: 70.3 kg

DRUGS (1)
  1. ARIMIDEX [Suspect]
     Indication: BREAST CANCER
     Route: 048
     Dates: start: 20090101

REACTIONS (2)
  - ABDOMINAL DISCOMFORT [None]
  - FLATULENCE [None]
